FAERS Safety Report 5317289-7 (Version None)
Quarter: 2007Q2

REPORT INFORMATION
  Report Type: 
  Country: None (occurrence: None)
  Receive Date: 20070504
  Receipt Date: 20070423
  Transmission Date: 20071010
  Serious: Yes (Other)
  Sender: FDA-Public Use
  Company Number: GB-PFIZER INC-2007033238

PATIENT
  Sex: Female

DRUGS (1)
  1. EPANUTIN SUSPENSION [Suspect]

REACTIONS (4)
  - ANAEMIA [None]
  - BALANCE DISORDER [None]
  - MYOCARDIAL INFARCTION [None]
  - NERVOUS SYSTEM DISORDER [None]
